FAERS Safety Report 4922088-1 (Version None)
Quarter: 2006Q1

REPORT INFORMATION
  Report Type: 
  Country: None (occurrence: None)
  Receive Date: 20060222
  Receipt Date: 20060222
  Transmission Date: 20060701
  Serious: Yes (Hospitalization)
  Sender: FDA-Public Use
  Company Number: None

PATIENT
  Age: 47 Year
  Sex: Female
  Weight: 72.5755 kg

DRUGS (13)
  1. RAMIPRIL [Suspect]
     Indication: MYOCARDIAL INFARCTION
     Dosage: 2.5 MG PO DAILY
     Route: 048
     Dates: start: 20051013, end: 20051014
  2. MAXZIDE [Concomitant]
  3. POTASSIUM CHLORIDE [Concomitant]
  4. BIRTH CONTROL PILL [Concomitant]
  5. PERCOCET [Concomitant]
  6. ATIVAN [Concomitant]
  7. DILAUDID [Concomitant]
  8. PHENERGAN [Concomitant]
  9. ASPIRIN [Concomitant]
  10. PANTOPRAZOLE [Concomitant]
  11. THIAMINE [Concomitant]
  12. VALIUM [Concomitant]
  13. MAGNESIUM [Concomitant]

REACTIONS (2)
  - ANGIONEUROTIC OEDEMA [None]
  - FACE OEDEMA [None]
